FAERS Safety Report 17763718 (Version 1)
Quarter: 2020Q2

REPORT INFORMATION
  Report Type: Spontaneous
  Country: FR (occurrence: FR)
  Receive Date: 20200510
  Receipt Date: 20200510
  Transmission Date: 20200714
  Serious: Yes (Hospitalization, Other)
  Sender: FDA-Public Use
  Company Number: FR-CADILA HEALTHCARE LIMITED-FR-ZYDUS-023103

PATIENT

DRUGS (23)
  1. CETIRIZINE [Suspect]
     Active Substance: CETIRIZINE HYDROCHLORIDE
     Indication: URTICARIA
     Dosage: 10 MILLIGRAM,(INTERVAL :1 DAYS)
     Route: 048
     Dates: start: 20180414, end: 20180423
  2. TRISENOX [Suspect]
     Active Substance: ARSENIC TRIOXIDE
     Indication: PRODUCT USED FOR UNKNOWN INDICATION
     Dosage: 12.75 MILLIGRAM,(INTERVAL :1 CYCLICAL)
     Route: 042
     Dates: start: 20180518, end: 20180521
  3. ZOLPIDEM [Concomitant]
     Active Substance: ZOLPIDEM TARTRATE
     Dosage: 5 MILLIGRAM
     Route: 065
     Dates: start: 20180419
  4. PANTOPRAZOLE [Suspect]
     Active Substance: PANTOPRAZOLE
     Indication: ABDOMINAL PAIN UPPER
     Dosage: 20 MILLIGRAM,20 MILLIGRAM, DAILY,(INTERVAL :1 DAYS)
     Route: 048
     Dates: start: 20180424, end: 20180519
  5. HYDREA [Concomitant]
     Active Substance: HYDROXYUREA
     Dosage: 1-1-1 ON 21/APR/2018? 2-2-2 FROM 23/MAY/2018 TO 27/MAY/2018
     Route: 065
     Dates: start: 20180421, end: 20180427
  6. VESANOID [Suspect]
     Active Substance: TRETINOIN
     Indication: ACUTE MYELOID LEUKAEMIA
     Dosage: 90 MILLIGRAM,CAPSULE,(INTERVAL :1 DAYS)
     Route: 048
     Dates: start: 20180411, end: 20180420
  7. TRISENOX [Suspect]
     Active Substance: ARSENIC TRIOXIDE
     Indication: ACUTE MYELOID LEUKAEMIA
     Dosage: 12.75 MILLIGRAM,CYCLICAL,(INTERVAL :1 CYCLICAL)
     Route: 042
     Dates: start: 20180411, end: 20180526
  8. TRISENOX [Suspect]
     Active Substance: ARSENIC TRIOXIDE
     Indication: PRODUCT USED FOR UNKNOWN INDICATION
     Dosage: 12.75 MILLIGRAM,J1 TO J5 / CURE; CYCLICAL; CYCLICAL,(INTERVAL :1 CYCLICAL)
     Route: 042
     Dates: start: 20180511, end: 20180515
  9. VESANOID [Suspect]
     Active Substance: TRETINOIN
     Indication: PRODUCT USED FOR UNKNOWN INDICATION
     Dosage: 90 MILLIGRAM,CAPSULE,(INTERVAL :1 DAYS)
     Route: 048
     Dates: start: 20180509
  10. LINEZOLIDE [Suspect]
     Active Substance: LINEZOLID
     Indication: FEBRILE BONE MARROW APLASIA
     Dosage: 600 MILLIGRAM,600 MILLIGRAM, TWO TIMES A DAY, (12 HOURS),(INTERVAL :12 HOURS)
     Route: 042
     Dates: start: 20180503, end: 20180517
  11. BACTRIM [Suspect]
     Active Substance: SULFAMETHOXAZOLE\TRIMETHOPRIM
     Indication: PRODUCT USED FOR UNKNOWN INDICATION
     Dosage: 800MG/160MG FOR 7 DAYS
     Dates: start: 20180411, end: 20180419
  12. CANCIDAS [Suspect]
     Active Substance: CASPOFUNGIN ACETATE
     Indication: FEBRILE BONE MARROW APLASIA
     Dosage: 70 MILLIGRAM,70 MILLIGRAM, DAILY,(INTERVAL :1 DAYS)
     Route: 042
     Dates: start: 20180503
  13. FLUCONAZOLE. [Suspect]
     Active Substance: FLUCONAZOLE
     Indication: PRODUCT USED FOR UNKNOWN INDICATION
     Dosage: 400 MILLIGRAM
     Route: 042
     Dates: start: 20180411
  14. PANTOPRAZOLE [Suspect]
     Active Substance: PANTOPRAZOLE
     Indication: ABDOMINAL PAIN UPPER
     Dosage: 20 MILLIGRAM,(INTERVAL :1 DAYS)
     Route: 048
     Dates: start: 20180424, end: 20180519
  15. TAZOCILLINE [Suspect]
     Active Substance: PIPERACILLIN SODIUM\TAZOBACTAM SODIUM
     Indication: FEBRILE BONE MARROW APLASIA
     Dosage: 16 GRAM,16 GRAM, DAILY,(INTERVAL :1 DAYS)
     Route: 042
     Dates: start: 20180413
  16. LINEZOLIDE [Suspect]
     Active Substance: LINEZOLID
     Indication: FEBRILE BONE MARROW APLASIA
     Dosage: 600 MILLIGRAM,(INTERVAL :12 HOURS)
     Route: 042
     Dates: start: 20180503, end: 20180517
  17. CETIRIZINE [Suspect]
     Active Substance: CETIRIZINE HYDROCHLORIDE
     Indication: URTICARIA
     Dosage: 10 MILLIGRAM,10 MILLIGRAM, DAILY,(INTERVAL :1 DAYS)
     Route: 048
     Dates: start: 20180414, end: 20180423
  18. AMLODIPINE [Suspect]
     Active Substance: AMLODIPINE BESYLATE
     Indication: HYPERTENSION
     Dosage: 10 MILLIGRAM,10 MILLIGRAM, DAILY,(INTERVAL :1 DAYS)
     Route: 048
     Dates: start: 20180509
  19. ALPRAZOLAM. [Suspect]
     Active Substance: ALPRAZOLAM
     Indication: ANXIETY
     Dosage: .25 MILLIGRAM,(INTERVAL :1 DAYS)
     Route: 048
     Dates: start: 20180512
  20. TRISENOX [Suspect]
     Active Substance: ARSENIC TRIOXIDE
     Indication: PRODUCT USED FOR UNKNOWN INDICATION
     Dosage: 12.75 MILLIGRAM,CYCLICAL,(INTERVAL :1 CYCLICAL)
     Route: 042
     Dates: start: 20180522
  21. ALPRAZOLAM. [Suspect]
     Active Substance: ALPRAZOLAM
     Indication: ANXIETY
     Dosage: .75 MILLIGRAM,TABLET BREACKABLE,(INTERVAL :1 DAYS)
     Route: 048
     Dates: start: 20180512
  22. TRISENOX [Suspect]
     Active Substance: ARSENIC TRIOXIDE
     Indication: ACUTE MYELOID LEUKAEMIA
     Dosage: 12.75 MILLIGRAM,(INTERVAL :1 CYCLICAL)
     Route: 042
     Dates: start: 20180411, end: 20180420
  23. ZELITREX [Suspect]
     Active Substance: VALACYCLOVIR HYDROCHLORIDE
     Indication: ANTIVIRAL PROPHYLAXIS
     Dosage: 500 MILLIGRAM,500 MG DAILY,(INTERVAL :1 DAYS)
     Route: 048
     Dates: start: 20180411

REACTIONS (6)
  - Hypokalaemia [Unknown]
  - Urticaria [Unknown]
  - Hyperleukocytosis [Unknown]
  - Electrocardiogram QT prolonged [Recovered/Resolved]
  - Differentiation syndrome [Unknown]
  - Hypomagnesaemia [Unknown]

NARRATIVE: CASE EVENT DATE: 20180420
